FAERS Safety Report 5809845-4 (Version None)
Quarter: 2008Q3

REPORT INFORMATION
  Report Type: 
  Country: None (occurrence: None)
  Receive Date: 20080715
  Receipt Date: 20080709
  Transmission Date: 20090109
  Serious: Yes (Other)
  Sender: FDA-Public Use
  Company Number: US-BRISTOL-MYERS SQUIBB COMPANY-14255574

PATIENT
  Age: 54 Year
  Sex: Female
  Weight: 86 kg

DRUGS (9)
  1. SPRYCEL [Suspect]
     Indication: CHRONIC MYELOID LEUKAEMIA
     Dosage: 2X50 MG TABS; TWICE DAILY. DOSE REDUCED: 07-JUL-2008 1X50 MG TABS/AM AND 2X50 MG TABS/PM = 150MG/DAY
     Dates: start: 20080626
  2. ETODOLAC [Concomitant]
     Dosage: TAKEN FOR YEARS
  3. TIZANIDINE HCL [Concomitant]
     Dosage: 1 DOSAGE FORM = 1/2 TAB TAKEN FOR 6 MONTHS
  4. BUPROPION HCL [Concomitant]
     Dosage: TAKEN FOR YEARS
  5. MAGNESIUM OXIDE [Concomitant]
     Dosage: 1 TAB AT BED TIME
  6. TRAZODONE HCL [Concomitant]
     Dosage: TAKEN FOR YEARS
  7. LOVAZA [Concomitant]
  8. NIACIN [Concomitant]
  9. AMBIEN [Concomitant]

REACTIONS (6)
  - DIARRHOEA [None]
  - LYMPHADENOPATHY [None]
  - MIGRAINE [None]
  - NAUSEA [None]
  - RASH [None]
  - SWELLING FACE [None]
